FAERS Safety Report 6308816-1 (Version None)
Quarter: 2009Q3

REPORT INFORMATION
  Report Type: 
  Country: None (occurrence: None)
  Receive Date: 20090813
  Receipt Date: 20080925
  Transmission Date: 20100115
  Serious: No
  Sender: FDA-Public Use
  Company Number: US-ALLERGAN-0812077US

PATIENT
  Age: 86 Year
  Sex: Male

DRUGS (12)
  1. COMBIGAN [Suspect]
     Indication: GLAUCOMA
     Dosage: UNK, BID
     Route: 047
  2. LUMIGAN [Concomitant]
     Dosage: UNK, QHS
     Route: 047
     Dates: start: 20080601
  3. TOPROL-XL [Concomitant]
  4. OMEPRAZOLE [Concomitant]
  5. LISINOPRIL [Concomitant]
  6. SULFASALAZINE [Concomitant]
  7. CELEBREX [Concomitant]
  8. REVATIO [Concomitant]
  9. LEVOTHYROXINE SODIUM [Concomitant]
  10. CARTIA XT [Concomitant]
  11. ZETIA [Concomitant]
  12. ADVAIR HFA [Concomitant]

REACTIONS (2)
  - DECREASED APPETITE [None]
  - FATIGUE [None]
